FAERS Safety Report 10334561 (Version 1)
Quarter: 2014Q3

REPORT INFORMATION
  Report Type: Spontaneous
  Country: US (occurrence: US)
  Receive Date: 20140723
  Receipt Date: 20140723
  Transmission Date: 20150326
  Serious: No
  Sender: FDA-Public Use
  Company Number: US-MYLANLABS-2013S1024116

PATIENT
  Sex: Male

DRUGS (1)
  1. PAROXETINE HYDROCHLORIDE CONTROLLED-RELEASE [Suspect]
     Active Substance: PAROXETINE HYDROCHLORIDE

REACTIONS (3)
  - Drug effect increased [Not Recovered/Not Resolved]
  - Hangover [Not Recovered/Not Resolved]
  - Somnolence [Not Recovered/Not Resolved]
